FAERS Safety Report 8056214-5 (Version None)
Quarter: 2012Q1

REPORT INFORMATION
  Report Type: 
  Country: None (occurrence: None)
  Receive Date: 20120119
  Receipt Date: 20120112
  Transmission Date: 20120608
  Serious: Yes (Hospitalization, Other)
  Sender: FDA-Public Use
  Company Number: PHHY2011JP105750

PATIENT
  Age: 76 Year
  Sex: Male
  Weight: 56 kg

DRUGS (2)
  1. METHOTREXATE [Suspect]
     Indication: RHEUMATOID ARTHRITIS
     Dates: start: 20000101
  2. PREDNISOLONE [Suspect]
     Indication: RHEUMATOID ARTHRITIS
     Dates: start: 20000101

REACTIONS (10)
  - ANAEMIA [None]
  - RENAL IMPAIRMENT [None]
  - GASTRIC ULCER [None]
  - ANGIOCENTRIC LYMPHOMA [None]
  - PULMONARY NECROSIS [None]
  - HEPATIC NEOPLASM [None]
  - EPSTEIN-BARR VIRUS TEST POSITIVE [None]
  - LUNG INFILTRATION [None]
  - LUNG NEOPLASM [None]
  - HYPOPROTEINAEMIA [None]
